FAERS Safety Report 4634812-6 (Version None)
Quarter: 2005Q2

REPORT INFORMATION
  Report Type: 
  Country: None (occurrence: None)
  Receive Date: 20050412
  Receipt Date: 20050331
  Transmission Date: 20051028
  Serious: Yes (Hospitalization)
  Sender: FDA-Public Use
  Company Number: 2005053912

PATIENT
  Sex: Female

DRUGS (5)
  1. GENOTROPIN [Suspect]
     Indication: ILL-DEFINED DISORDER
     Dosage: 0.3 MG, (0.3 MG EVERY OTHER DAY), SUBCUTANEOUS
     Route: 058
  2. METOPROLOL TARTRATE [Concomitant]
  3. CLOPIDOGREL BISULFATE [Concomitant]
  4. PRAVASTATIN [Concomitant]
  5. NADROPARIN (NADROPARIN) [Concomitant]

REACTIONS (4)
  - BLOOD GLUCOSE INCREASED [None]
  - CAROTID ARTERY STENOSIS [None]
  - CEREBRAL ISCHAEMIA [None]
  - URINARY TRACT INFECTION [None]
